FAERS Safety Report 19084862 (Version 1)
Quarter: 2021Q2

REPORT INFORMATION
  Report Type: Other
  Country: TW (occurrence: TW)
  Receive Date: 20210401
  Receipt Date: 20210401
  Transmission Date: 20210717
  Serious: Yes (Other)
  Sender: FDA-Public Use
  Company Number: TW-ROCHE-2798036

PATIENT

DRUGS (11)
  1. GRAZOPREVIR. [Suspect]
     Active Substance: GRAZOPREVIR
     Indication: CHRONIC HEPATITIS C
     Route: 065
  2. ELBASVIR. [Suspect]
     Active Substance: ELBASVIR
     Indication: CHRONIC HEPATITIS C
     Route: 065
  3. LEDIPASVIR [Suspect]
     Active Substance: LEDIPASVIR
     Indication: CHRONIC HEPATITIS C
     Route: 065
  4. PARITAPREVIR [Suspect]
     Active Substance: PARITAPREVIR
     Indication: CHRONIC HEPATITIS C
     Route: 065
  5. SOFOSBUVIR [Suspect]
     Active Substance: SOFOSBUVIR
     Indication: CHRONIC HEPATITIS C
     Route: 065
  6. ASUNAPREVIR [Suspect]
     Active Substance: ASUNAPREVIR
     Indication: CHRONIC HEPATITIS C
     Route: 065
  7. RIBAVIRIN. [Suspect]
     Active Substance: RIBAVIRIN
     Indication: CHRONIC HEPATITIS C
     Route: 065
  8. DACLATASVIR. [Suspect]
     Active Substance: DACLATASVIR
     Indication: CHRONIC HEPATITIS C
     Route: 065
  9. VELPATASVIR [Suspect]
     Active Substance: VELPATASVIR
     Indication: CHRONIC HEPATITIS C
     Route: 065
  10. PIBRENTASVIR [Suspect]
     Active Substance: PIBRENTASVIR
     Indication: CHRONIC HEPATITIS C
     Route: 065
  11. GLECAPREVIR [Suspect]
     Active Substance: GLECAPREVIR
     Indication: CHRONIC HEPATITIS C
     Route: 065

REACTIONS (12)
  - Hepatocellular carcinoma [Unknown]
  - Acute coronary syndrome [Unknown]
  - Gastrointestinal disorder [Unknown]
  - Endocrine disorder [Unknown]
  - Treatment failure [Unknown]
  - Infection [Unknown]
  - Hepatic cirrhosis [Unknown]
  - Neoplasm malignant [Unknown]
  - Skin disorder [Unknown]
  - Gastrointestinal haemorrhage [Unknown]
  - Cerebrovascular disorder [Unknown]
  - Acute kidney injury [Unknown]
